FAERS Safety Report 25319476 (Version 2)
Quarter: 2025Q2

REPORT INFORMATION
  Report Type: Spontaneous
  Country: US (occurrence: US)
  Receive Date: 20250515
  Receipt Date: 20250627
  Transmission Date: 20250717
  Serious: No
  Sender: BRISTOL-MYERS SQUIBB COMPANY
  Company Number: US-BRISTOL-MYERS SQUIBB COMPANY-2025-066943

PATIENT
  Age: 60 Year
  Sex: Female

DRUGS (2)
  1. REVLIMID [Suspect]
     Active Substance: LENALIDOMIDE
     Indication: Follicular lymphoma
     Route: 048
  2. REVLIMID [Suspect]
     Active Substance: LENALIDOMIDE
     Route: 048

REACTIONS (9)
  - Rash [Not Recovered/Not Resolved]
  - Nausea [Unknown]
  - Oedema peripheral [Unknown]
  - Localised oedema [Unknown]
  - Hepatic enzyme increased [Unknown]
  - Arthralgia [Unknown]
  - Myalgia [Unknown]
  - Fatigue [Unknown]
  - Asthenia [Unknown]
